FAERS Safety Report 4307841-X (Version None)
Quarter: 2004Q1

REPORT INFORMATION
  Report Type: 
  Country: None (occurrence: None)
  Receive Date: 20040226
  Receipt Date: 20030924
  Transmission Date: 20041129
  Serious: Yes (Hospitalization)
  Sender: FDA-Public Use
  Company Number: 2003178332US

PATIENT
  Age: 66 Year
  Sex: Male

DRUGS (6)
  1. CELEBREX [Suspect]
     Indication: PAIN
     Dosage: 400 MG, SINGLE
     Dates: start: 20030831, end: 20030831
  2. CARISOPRODOL [Concomitant]
  3. TOPROL-XL [Concomitant]
  4. GEMFIBROZIL [Concomitant]
  5. IBUPROFEN [Concomitant]
  6. XANAX [Concomitant]

REACTIONS (2)
  - ANAPHYLACTIC SHOCK [None]
  - RASH [None]
